FAERS Safety Report 4322214-1 (Version None)
Quarter: 2004Q1

REPORT INFORMATION
  Report Type: 
  Country: None (occurrence: None)
  Receive Date: 20040319
  Receipt Date: 20040309
  Transmission Date: 20041129
  Serious: Yes (Other)
  Sender: FDA-Public Use
  Company Number: 2004001548

PATIENT
  Age: 69 Year
  Sex: Male
  Weight: 114 kg

DRUGS (6)
  1. TIKOSYN [Suspect]
     Indication: ATRIAL FIBRILLATION
     Dosage: 1000 MCG (EVERY TWELVE HOURS), ORAL
     Route: 048
     Dates: start: 20020601
  2. LOTREL [Concomitant]
  3. ATENOLOL [Concomitant]
  4. DOCUSATE SODIUM (DOCUSATE SODIUM) [Concomitant]
  5. OMEPRAZOLE [Concomitant]
  6. ACETAMINOPHEN [Concomitant]

REACTIONS (7)
  - ABDOMINAL PAIN [None]
  - ADENOCARCINOMA [None]
  - GASTROINTESTINAL DISORDER [None]
  - METASTATIC NEOPLASM [None]
  - POST PROCEDURAL COMPLICATION [None]
  - PULMONARY EMBOLISM [None]
  - RENAL FUNCTION TEST ABNORMAL [None]
